FAERS Safety Report 4510509-8 (Version None)
Quarter: 2004Q4

REPORT INFORMATION
  Report Type: 
  Country: None (occurrence: None)
  Receive Date: 20041005
  Receipt Date: 20040820
  Transmission Date: 20050328
  Serious: No
  Sender: FDA-Public Use
  Company Number: SU-2004-002623

PATIENT
  Age: 64 Year
  Sex: Female
  Weight: 86.1834 kg

DRUGS (4)
  1. BENICAR HCT [Suspect]
     Indication: HYPERTENSION
     Dosage: 20.125 MG QD PO
     Route: 048
     Dates: start: 20040819, end: 20040819
  2. EFFEXOR XR [Concomitant]
  3. PREVACID [Concomitant]
  4. CRESTOR [Concomitant]

REACTIONS (2)
  - OEDEMA MOUTH [None]
  - SWOLLEN TONGUE [None]
